FAERS Safety Report 13779913 (Version 2)
Quarter: 2017Q3

REPORT INFORMATION
  Report Type: Report from Study
  Country: BR (occurrence: BR)
  Receive Date: 20170723
  Receipt Date: 20170804
  Transmission Date: 20171127
  Serious: Yes (Death, Hospitalization)
  Sender: FDA-Public Use
  Company Number: PHHY2017BR090793

PATIENT
  Age: 58 Year
  Sex: Male

DRUGS (1)
  1. COSENTYX [Suspect]
     Active Substance: SECUKINUMAB
     Indication: PSORIASIS
     Dosage: 300 MG, UNK (TWO PENS PER MONTH)
     Route: 058

REACTIONS (12)
  - Femur fracture [Unknown]
  - Dry skin [Unknown]
  - Sepsis [Fatal]
  - Hypersensitivity [Unknown]
  - Skin fissures [Unknown]
  - Alopecia [Unknown]
  - Fall [Unknown]
  - Psoriasis [Unknown]
  - Pneumonia [Unknown]
  - Asthenia [Unknown]
  - Malaise [Unknown]
  - Dyspnoea [Unknown]

NARRATIVE: CASE EVENT DATE: 20170610
